FAERS Safety Report 9311392 (Version 1)
Quarter: 2013Q2

REPORT INFORMATION
  Report Type: Spontaneous
  Country: ES (occurrence: ES)
  Receive Date: 20130528
  Receipt Date: 20130528
  Transmission Date: 20140414
  Serious: Yes (Other)
  Sender: FDA-Public Use
  Company Number: ES-JNJFOC-20130515549

PATIENT
  Age: 62 Year
  Sex: Male

DRUGS (1)
  1. PAZITAL [Suspect]
     Indication: MUSCULOSKELETAL PAIN
     Route: 048
     Dates: start: 20130116, end: 20130120

REACTIONS (1)
  - Erectile dysfunction [Recovered/Resolved]
